FAERS Safety Report 18908366 (Version 1)
Quarter: 2021Q1

REPORT INFORMATION
  Report Type: Spontaneous
  Country: PL (occurrence: PL)
  Receive Date: 20210218
  Receipt Date: 20210218
  Transmission Date: 20210420
  Serious: Yes (Hospitalization)
  Sender: FDA-Public Use
  Company Number: PL-TEVA-2021-PL-1882237

PATIENT
  Age: 73 Year
  Sex: Male

DRUGS (7)
  1. BUDESONIDE. [Suspect]
     Active Substance: BUDESONIDE
     Indication: EOSINOPHILIC BRONCHITIS
     Dosage: 4000 MICROGRAM DAILY;
     Route: 055
  2. RITUXIMAB. [Suspect]
     Active Substance: RITUXIMAB
     Dosage: 10 CYCLES OF RITUXIMAB EVERY 2 MONTHS, WITH THE RECENT CYCLE ADMINISTERED A MONTH PRIOR
     Route: 065
  3. VINCRISTINE [Suspect]
     Active Substance: VINCRISTINE
     Indication: NON-HODGKIN^S LYMPHOMA
     Dosage: 8 CYCLES (PART OF R?CVP REGIMEN)
     Route: 065
  4. CYCLOPHOSPHAMIDE. [Suspect]
     Active Substance: CYCLOPHOSPHAMIDE
     Indication: NON-HODGKIN^S LYMPHOMA
     Dosage: 8 CYCLES (PART OF R?CVP REGIMEN)
     Route: 065
  5. PREDNISOLONE. [Suspect]
     Active Substance: PREDNISOLONE
     Indication: NON-HODGKIN^S LYMPHOMA
     Dosage: 8 CYCLES (PART OF R?CVP REGIMEN)
     Route: 065
  6. RITUXIMAB. [Suspect]
     Active Substance: RITUXIMAB
     Indication: NON-HODGKIN^S LYMPHOMA
     Dosage: 8 CYCLES (PART OF R?CVP REGIMEN)
     Route: 065
  7. METHYLPREDNISOLONE. [Suspect]
     Active Substance: METHYLPREDNISOLONE
     Indication: EOSINOPHILIC BRONCHITIS
     Dosage: 80 MILLIGRAM DAILY; TAPERED AFTER 6 DAYS OF 80MG DOSE
     Route: 042

REACTIONS (1)
  - Disseminated strongyloidiasis [Recovering/Resolving]
